FAERS Safety Report 23835940 (Version 1)
Quarter: 2024Q2

REPORT INFORMATION
  Report Type: Spontaneous
  Country: US (occurrence: None)
  Receive Date: 20240507
  Receipt Date: 20240507
  Transmission Date: 20240716
  Serious: Yes (Hospitalization)
  Sender: FDA-Public Use
  Company Number: None

PATIENT
  Age: 96 Year
  Sex: Male

DRUGS (2)
  1. WARFARIN SODIUM [Suspect]
     Active Substance: WARFARIN SODIUM
     Indication: Deep vein thrombosis
     Dosage: FREQUENCY : DAILY;?
     Route: 048
     Dates: end: 20240402
  2. ASPIRIN 81MG [Suspect]
     Active Substance: ASPIRIN
     Indication: Transcatheter aortic valve implantation
     Dosage: FREQUENCY : DAILY;?
     Route: 048

REACTIONS (4)
  - Haemoptysis [None]
  - Anticoagulation drug level above therapeutic [None]
  - Headache [None]
  - Haemoglobin decreased [None]

NARRATIVE: CASE EVENT DATE: 20240402
